FAERS Safety Report 21853447 (Version 1)
Quarter: 2023Q1

REPORT INFORMATION
  Report Type: Spontaneous
  Country: US (occurrence: None)
  Receive Date: 20230111
  Receipt Date: 20230111
  Transmission Date: 20230418
  Serious: Yes (Hospitalization)
  Sender: FDA-Public Use
  Company Number: None

PATIENT
  Age: 72 Year
  Sex: Female

DRUGS (2)
  1. LETROZOLE [Suspect]
     Active Substance: LETROZOLE
     Indication: Endometrial cancer
     Dosage: 2.5MG DAILY ORAL
     Route: 048
     Dates: start: 202109
  2. EVEROLIMUS [Suspect]
     Active Substance: EVEROLIMUS
     Indication: Endometrial cancer
     Dosage: 10MG 1 DAILY ORAL?
     Route: 048
     Dates: start: 202110

REACTIONS (3)
  - COVID-19 [None]
  - Malaise [None]
  - Feeling abnormal [None]

NARRATIVE: CASE EVENT DATE: 20221225
